FAERS Safety Report 6694460-3 (Version None)
Quarter: 2010Q2

REPORT INFORMATION
  Report Type: 
  Country: None (occurrence: None)
  Receive Date: 20100423
  Receipt Date: 20100412
  Transmission Date: 20101027
  Serious: Yes (Hospitalization)
  Sender: FDA-Public Use
  Company Number: JP-PFIZER INC-2010011368

PATIENT
  Age: 11 Month
  Sex: Male

DRUGS (1)
  1. GENOTROPIN [Suspect]
     Indication: BODY HEIGHT BELOW NORMAL
     Dosage: 0.3 MG, 1X/DAY
     Route: 058
     Dates: start: 20091026

REACTIONS (2)
  - NASOPHARYNGITIS [None]
  - PYREXIA [None]
